FAERS Safety Report 9330097 (Version 2)
Quarter: 2013Q4

REPORT INFORMATION
  Report Type: Spontaneous
  Country: US (occurrence: US)
  Receive Date: 20130604
  Receipt Date: 20131113
  Transmission Date: 20140711
  Serious: Yes (Hospitalization)
  Sender: FDA-Public Use
  Company Number: US-B.I. PHARMACEUTICALS,INC./RIDGEFIELD-2013-BI-15447BP

PATIENT
  Age: 68 Year
  Sex: Male
  Weight: 118.6 kg

DRUGS (20)
  1. PRADAXA [Suspect]
     Indication: ANTICOAGULANT THERAPY
     Dates: start: 20110414, end: 201203
  2. PRADAXA [Suspect]
     Indication: ATRIAL FIBRILLATION
  3. TYLENOL [Concomitant]
  4. ADVAIR DISKUS [Concomitant]
  5. ALBUTEROL [Concomitant]
     Dates: start: 2003, end: 2012
  6. ALLOPURINOL [Concomitant]
     Dates: start: 2003
  7. ASPIRIN [Concomitant]
     Indication: ATRIAL FIBRILLATION
     Dates: end: 20120326
  8. CINNAMON [Concomitant]
  9. COREG [Concomitant]
     Dates: start: 1994, end: 2012
  10. CRESTOR [Concomitant]
     Dates: start: 2002, end: 2012
  11. DILAUDID [Concomitant]
  12. LASIX [Concomitant]
     Dates: start: 1994
  13. LORTAB [Concomitant]
  14. METOLAZONE [Concomitant]
  15. OMEGA-3 FATTY ACIDS [Concomitant]
  16. OMEPRAZOLE [Concomitant]
     Dosage: 20 MG
  17. POTASSIUM CHLORIDE [Concomitant]
     Dates: start: 1994, end: 2012
  18. SYNTHROID [Concomitant]
  19. NITROGLYCERIN [Concomitant]
     Dates: start: 2002
  20. MELOXICAM [Concomitant]
     Dates: start: 2010

REACTIONS (2)
  - Gastrointestinal haemorrhage [Unknown]
  - Haemorrhagic anaemia [Unknown]
